FAERS Safety Report 11654006 (Version 2)
Quarter: 2015Q4

REPORT INFORMATION
  Report Type: Spontaneous
  Country: GB (occurrence: GB)
  Receive Date: 20151023
  Receipt Date: 20151127
  Transmission Date: 20160304
  Serious: Yes (Other)
  Sender: FDA-Public Use
  Company Number: GB-HOSPIRA-3046915

PATIENT
  Age: 57 Year
  Sex: Male

DRUGS (15)
  1. IFOSFAMIDE. [Suspect]
     Active Substance: IFOSFAMIDE
     Indication: HODGKIN^S DISEASE
     Route: 041
     Dates: start: 2015
  2. ALLOPURINOL. [Suspect]
     Active Substance: ALLOPURINOL
     Indication: HODGKIN^S DISEASE
     Dosage: MORNING, FOR 7 DAYS CYCLE 1 AND 2
     Route: 048
     Dates: start: 2015
  3. VINORELBINE [Suspect]
     Active Substance: VINORELBINE\VINORELBINE TARTRATE
     Indication: HODGKIN^S DISEASE
     Route: 041
     Dates: start: 2015
  4. MESNA. [Concomitant]
     Active Substance: MESNA
     Indication: HODGKIN^S DISEASE
     Route: 042
     Dates: start: 2015
  5. ONDANSETRON [Suspect]
     Active Substance: ONDANSETRON
     Indication: HODGKIN^S DISEASE
     Route: 048
     Dates: start: 2015
  6. COTRIMOXAZOLE [Suspect]
     Active Substance: SULFAMETHOXAZOLE\TRIMETHOPRIM
     Indication: HODGKIN^S DISEASE
     Route: 048
     Dates: start: 2015
  7. ACICLOVIR [Suspect]
     Active Substance: ACYCLOVIR
     Indication: HODGKIN^S DISEASE
     Route: 048
     Dates: start: 2015
  8. FLUCONAZOLE. [Concomitant]
     Active Substance: FLUCONAZOLE
     Indication: HODGKIN^S DISEASE
     Dates: start: 2015
  9. PREDNISOLONE. [Concomitant]
     Active Substance: PREDNISOLONE
     Indication: HODGKIN^S DISEASE
     Dates: start: 2015
  10. FILGRASTIM [Concomitant]
     Active Substance: FILGRASTIM
     Indication: HODGKIN^S DISEASE
     Route: 058
     Dates: start: 2015
  11. OMEPRAZOLE. [Concomitant]
     Active Substance: OMEPRAZOLE
     Indication: HODGKIN^S DISEASE
     Route: 048
     Dates: start: 2015
  12. GEMCITABINE HYDROCHLORIDE. [Suspect]
     Active Substance: GEMCITABINE HYDROCHLORIDE
     Indication: HODGKIN^S DISEASE
     Route: 041
     Dates: start: 2015
  13. MESNA. [Concomitant]
     Active Substance: MESNA
     Indication: HODGKIN^S DISEASE
     Route: 048
     Dates: start: 2015
  14. PHENYTOIN. [Concomitant]
     Active Substance: PHENYTOIN
     Indication: HODGKIN^S DISEASE
     Dates: start: 2015
  15. CHLORHEXIDINE [Concomitant]
     Active Substance: CHLORHEXIDINE
     Indication: HODGKIN^S DISEASE
     Dates: start: 2015

REACTIONS (3)
  - Pruritus [Unknown]
  - Rash [Unknown]
  - Blister [Not Recovered/Not Resolved]

NARRATIVE: CASE EVENT DATE: 20150813
